FAERS Safety Report 16577655 (Version 2)
Quarter: 2022Q1

REPORT INFORMATION
  Report Type: Report from Study
  Country: CA (occurrence: CA)
  Receive Date: 20190716
  Receipt Date: 20220210
  Transmission Date: 20220424
  Serious: Yes (Hospitalization)
  Sender: FDA-Public Use
  Company Number: PHHY2019CA084823

PATIENT
  Age: 37 Year
  Sex: Female

DRUGS (3)
  1. ELTROMBOPAG OLAMINE [Suspect]
     Active Substance: ELTROMBOPAG OLAMINE
     Indication: Immune thrombocytopenia
     Dosage: 25 MG, UNK
     Route: 065
     Dates: start: 20181031
  2. ELTROMBOPAG OLAMINE [Suspect]
     Active Substance: ELTROMBOPAG OLAMINE
     Dosage: 50 MG, UNK
     Route: 048
     Dates: start: 20181031
  3. ELTROMBOPAG OLAMINE [Suspect]
     Active Substance: ELTROMBOPAG OLAMINE
     Dosage: 25 MG, QD
     Route: 048
     Dates: start: 20200823

REACTIONS (12)
  - Platelet count decreased [Recovering/Resolving]
  - Infection [Unknown]
  - Pyrexia [Unknown]
  - Nausea [Unknown]
  - Headache [Unknown]
  - Feeling abnormal [Unknown]
  - Illness [Unknown]
  - Dizziness [Unknown]
  - Fatigue [Unknown]
  - Hyperhidrosis [Unknown]
  - Feeling hot [Unknown]
  - Memory impairment [Unknown]

NARRATIVE: CASE EVENT DATE: 20190101
